FAERS Safety Report 12810205 (Version 1)
Quarter: 2016Q4

REPORT INFORMATION
  Report Type: Spontaneous
  Country: US (occurrence: US)
  Receive Date: 20161005
  Receipt Date: 20161005
  Transmission Date: 20170207
  Serious: No
  Sender: FDA-Public Use
  Company Number: US-PFIZER INC-2016460548

PATIENT
  Age: 70 Year
  Sex: Female

DRUGS (1)
  1. GABAPENTIN. [Suspect]
     Active Substance: GABAPENTIN
     Dosage: 600 MG, TWO PILLS, THREE TIMES A DAY

REACTIONS (4)
  - Overdose [Unknown]
  - Drug dispensing error [Unknown]
  - Feeling abnormal [Unknown]
  - Drug effect incomplete [Unknown]
